FAERS Safety Report 13666005 (Version 1)
Quarter: 2017Q2

REPORT INFORMATION
  Report Type: Spontaneous
  Country: US (occurrence: US)
  Receive Date: 20170619
  Receipt Date: 20170619
  Transmission Date: 20170830
  Serious: Yes (Other)
  Sender: FDA-Public Use
  Company Number: US-ACTELION-A-US2017-155268

PATIENT
  Age: 57 Year
  Sex: Male

DRUGS (2)
  1. NEXIUM [Concomitant]
     Active Substance: ESOMEPRAZOLE MAGNESIUM
     Dosage: 40 MG, UNK
  2. OPSUMIT [Suspect]
     Active Substance: MACITENTAN
     Indication: RIGHT-TO-LEFT CARDIAC SHUNT
     Dosage: 10 MG, UNK
     Route: 048
     Dates: start: 20170403

REACTIONS (1)
  - Cardiac operation [Recovered/Resolved]
